FAERS Safety Report 5155468-2 (Version None)
Quarter: 2006Q4

REPORT INFORMATION
  Report Type: 
  Country: None (occurrence: None)
  Receive Date: 20061121
  Receipt Date: 20061113
  Transmission Date: 20070319
  Serious: Yes (Other)
  Sender: FDA-Public Use
  Company Number: US-ROXANE LABORATORIES, INC-2006-BP-13266RO

PATIENT
  Sex: Female

DRUGS (3)
  1. FLECAINIDE ACETATE [Suspect]
     Indication: TACHYCARDIA FOETAL
     Route: 048
  2. FLECAINIDE ACETATE [Suspect]
     Route: 048
  3. MEDICINALPRODUCT NOT SPECIFIED BY SENDER [Concomitant]

REACTIONS (2)
  - DRUG INEFFECTIVE FOR UNAPPROVED INDICATION [None]
  - FOETAL HEART RATE DECREASED [None]
